FAERS Safety Report 9900831 (Version 11)
Quarter: 2014Q2

REPORT INFORMATION
  Report Type: Report from Study
  Country: PL (occurrence: PL)
  Receive Date: 20140217
  Receipt Date: 20140630
  Transmission Date: 20141212
  Serious: Yes (Hospitalization)
  Sender: FDA-Public Use
  Company Number: PL-ROCHE-1349129

PATIENT
  Age: 64 Year
  Sex: Male
  Weight: 86 kg

DRUGS (2)
  1. VEMURAFENIB [Suspect]
     Indication: METASTATIC MALIGNANT MELANOMA
     Dosage: ON 04/FEB/2014, HE RECEIVED MOST RECENT DOSE OF VEMURAFENIB.
     Route: 048
     Dates: start: 20120626, end: 20140205
  2. VEMURAFENIB [Suspect]
     Dosage: REDUCED DOSE
     Route: 048
     Dates: start: 20140218, end: 20140321

REACTIONS (1)
  - Anaemia [Not Recovered/Not Resolved]
